FAERS Safety Report 8274469-9 (Version None)
Quarter: 2012Q2

REPORT INFORMATION
  Report Type: 
  Country: None (occurrence: None)
  Receive Date: 20120411
  Receipt Date: 20120404
  Transmission Date: 20120825
  Serious: Yes (Other)
  Sender: FDA-Public Use
  Company Number: JP-EISAI INC-E2090-02052-SPO-JP

PATIENT
  Sex: Male

DRUGS (13)
  1. ZONISAMIDE [Suspect]
     Indication: EPILEPSY
     Route: 048
     Dates: start: 20111117, end: 20120323
  2. HOKUNALIN [Concomitant]
  3. SODIUM BICARBONATE [Concomitant]
  4. EPINASTINE HYDROCHLORIDE [Concomitant]
  5. ALLOID G [Concomitant]
  6. ASPARA POTASSIUM [Concomitant]
  7. LAMICTAL [Suspect]
     Indication: EPILEPSY
     Dates: start: 20120313, end: 20120322
  8. LAC-B [Concomitant]
  9. WARFARIN SODIUM [Concomitant]
  10. MYSTAN [Concomitant]
  11. MIYA BM [Concomitant]
  12. BISOPROLOL FUMARATE [Concomitant]
  13. DIAZEPAM [Concomitant]

REACTIONS (1)
  - AGRANULOCYTOSIS [None]
